FAERS Safety Report 7960552-1 (Version None)
Quarter: 2011Q4

REPORT INFORMATION
  Report Type: 
  Country: None (occurrence: None)
  Receive Date: 20111206
  Receipt Date: 20111201
  Transmission Date: 20120403
  Serious: Yes (Other)
  Sender: FDA-Public Use
  Company Number: PHHY2011JP92809

PATIENT
  Age: 48 Year
  Sex: Female

DRUGS (4)
  1. ZOMETA [Suspect]
     Dosage: 4 MG,
     Route: 042
     Dates: start: 20060901, end: 20100901
  2. HORMONES [Concomitant]
  3. ZOMETA [Suspect]
     Dosage: 4 MG,
     Route: 042
     Dates: start: 20101201
  4. TAMOXIFEN [Concomitant]

REACTIONS (12)
  - OSTEONECROSIS OF JAW [None]
  - SOFT TISSUE INFECTION [None]
  - EXPOSED BONE IN JAW [None]
  - OSTEOMYELITIS [None]
  - FISTULA [None]
  - OSTEOLYSIS [None]
  - IMPAIRED HEALING [None]
  - GINGIVAL INFECTION [None]
  - PURULENT DISCHARGE [None]
  - SWELLING [None]
  - ERYTHEMA [None]
  - PAIN [None]
